FAERS Safety Report 6408295-X (Version None)
Quarter: 2009Q4

REPORT INFORMATION
  Report Type: 
  Country: None (occurrence: None)
  Receive Date: 20091021
  Receipt Date: 20091012
  Transmission Date: 20100525
  Serious: Yes (Hospitalization)
  Sender: FDA-Public Use
  Company Number: US-JNJFOC-20091004588

PATIENT
  Sex: Male
  Weight: 63.5 kg

DRUGS (3)
  1. DURAGESIC-100 [Suspect]
     Indication: SPINAL COMPRESSION FRACTURE
     Route: 062
     Dates: start: 19980101, end: 20070101
  2. MORPHINE [Concomitant]
     Indication: BREAKTHROUGH PAIN
     Route: 065
  3. UNKNOWN MEDICATION [Concomitant]
     Route: 065

REACTIONS (1)
  - SPINAL FRACTURE [None]
